FAERS Safety Report 23257932 (Version 2)
Quarter: 2024Q1

REPORT INFORMATION
  Report Type: Spontaneous
  Country: US (occurrence: US)
  Receive Date: 20231204
  Receipt Date: 20240214
  Transmission Date: 20240410
  Serious: No
  Sender: FDA-Public Use
  Company Number: US-SA-SAC20231130000397

PATIENT
  Age: 8 Year
  Sex: Male
  Weight: 52 kg

DRUGS (13)
  1. DUPIXENT [Suspect]
     Active Substance: DUPILUMAB
     Indication: Asthma
     Dosage: 200 MG, QOW
     Route: 058
  2. ALBUTEROL SULFATE [Concomitant]
     Active Substance: ALBUTEROL SULFATE
     Dosage: 2-4 PUFF(S) INHALED EVERY 4-6 HOURS AS NEEDED FOR COUGH, WHEEZING, SHORTNESS OF BREATH, PRN
  3. ATROVENT HFA [Concomitant]
     Active Substance: IPRATROPIUM BROMIDE
     Dosage: 2 PUFFS INHALED EVERY 4-6 HRS AS NEEDED FOR COUGH, WHEEZE, SHORTNESS OF BREATH, PRN
  4. EPIPEN [Concomitant]
     Active Substance: EPINEPHRINE
     Dosage: UNK UNK, PRN
     Route: 030
  5. NUCALA [Concomitant]
     Active Substance: MEPOLIZUMAB
     Dosage: 40 MG, Q4W
  6. OXCARBAZEPINE [Concomitant]
     Active Substance: OXCARBAZEPINE
     Dosage: 8 RD. IN AM, 8 ML MIDDAY AND 15 ML QHS.
  7. QVAR REDIHALER [Concomitant]
     Active Substance: BECLOMETHASONE DIPROPIONATE
     Dosage: 2 PUFF(S) INHALED , BID
  8. SPIRIVA RESPIMAT [Concomitant]
     Active Substance: TIOTROPIUM BROMIDE
     Dosage: 1.25 MOG/INH/2 PUFF(S) INHALED
  9. CETIRIZINE [Concomitant]
     Active Substance: CETIRIZINE HYDROCHLORIDE
     Dosage: 5 ML, PRN,  2 TIMES A DAY, AS NEEDED
     Route: 048
  10. CLONAZEPAM [Concomitant]
     Active Substance: CLONAZEPAM
     Dosage: UNK UNK, QD
     Route: 048
  11. PREDNISOLONE [Concomitant]
     Active Substance: PREDNISOLONE
     Dosage: 5 ML, BID
     Route: 048
  12. ASMANEX [Concomitant]
     Active Substance: MOMETASONE FUROATE
     Dosage: UNK UNK, QD,1 PUFF(S) INHALED
  13. SYMBICORT [Concomitant]
     Active Substance: BUDESONIDE\FORMOTEROL FUMARATE DIHYDRATE
     Dosage: UNK UNK, BID,  160 MCG-4.5 MCG/INH,  2 PUFF(S) INHALED 2 TIMES A DAY

REACTIONS (4)
  - Dyspnoea [Unknown]
  - Therapeutic response decreased [Unknown]
  - Asthma [Unknown]
  - Inappropriate schedule of product administration [Unknown]
